FAERS Safety Report 4939379-0 (Version None)
Quarter: 2006Q1

REPORT INFORMATION
  Report Type: 
  Country: None (occurrence: None)
  Receive Date: 20060306
  Receipt Date: 20060224
  Transmission Date: 20060701
  Serious: Yes (Hospitalization)
  Sender: FDA-Public Use
  Company Number: 2006-02-1340

PATIENT
  Age: 23 Year
  Sex: Female
  Weight: 73.9363 kg

DRUGS (4)
  1. AERIUS (DESLORATADINE) TABLETS [Suspect]
     Indication: SINUSITIS
     Dosage: 5 MG QD ORAL
     Route: 048
     Dates: start: 20060125, end: 20060207
  2. LEVOFLOXACIN [Suspect]
     Indication: SINUSITIS
     Dosage: 500 MG, ORAL
     Route: 048
     Dates: start: 20060125, end: 20060202
  3. NEOCIN TABLETS [Suspect]
     Indication: SINUSITIS
     Dosage: 1 TABLET ORAL ORAL
     Route: 048
     Dates: start: 20060125, end: 20060202
  4. RINALIN SPRAY (AZALANTINE CHLORHYDRATE) [Suspect]
     Indication: SINUSITIS
     Dosage: QD/NARE
     Dates: start: 20060125, end: 20060207

REACTIONS (2)
  - ANXIETY [None]
  - TACHYCARDIA [None]
